FAERS Safety Report 8778141 (Version 6)
Quarter: 2016Q1

REPORT INFORMATION
  Report Type: Report from Study
  Country: AU (occurrence: AU)
  Receive Date: 20120912
  Receipt Date: 20160216
  Transmission Date: 20160526
  Serious: Yes (Death, Hospitalization, Other)
  Sender: FDA-Public Use
  Company Number: AU-BRISTOL-MYERS SQUIBB COMPANY-16841090

PATIENT
  Age: 64 Year
  Sex: Male

DRUGS (14)
  1. DEXAMETHASONE. [Concomitant]
     Active Substance: DEXAMETHASONE
     Indication: INFLAMMATION
     Dosage: TAKE ONE TABLET
     Route: 065
  2. ENOXAPARIN [Concomitant]
     Active Substance: ENOXAPARIN
     Indication: PROPHYLAXIS
     Dosage: INJECTION 80MG/0.8ML.
     Route: 058
  3. IPILIMUMAB [Suspect]
     Active Substance: IPILIMUMAB
     Indication: MALIGNANT MELANOMA
     Dosage: 1DF= 3US10MG/KG. LAST DOSE ON 31AUG12.
     Route: 042
     Dates: start: 20120720, end: 20120831
  4. ROSUVASTATIN [Concomitant]
     Active Substance: ROSUVASTATIN
     Indication: BLOOD CHOLESTEROL INCREASED
     Dosage: MORNING
     Route: 065
  5. SODIUM CHLORIDE. [Concomitant]
     Active Substance: SODIUM CHLORIDE
     Indication: PRODUCT USED FOR UNKNOWN INDICATION
     Dosage: MOUTHWASH.AFTER EACH MEAL AND AT BED TIME
     Route: 065
  6. PARACETAMOL TABS 500 MG [Concomitant]
     Active Substance: ACETAMINOPHEN
     Indication: PYREXIA
     Dosage: 1DF=2UNS
     Route: 065
  7. OXYCODONE [Concomitant]
     Active Substance: OXYCODONE
     Indication: PAIN
     Dosage: ONE TABLET 4 TIMES A DAY.
     Route: 065
  8. ASPIRIN. [Concomitant]
     Active Substance: ASPIRIN
     Indication: PRODUCT USED FOR UNKNOWN INDICATION
     Dosage: UNK
     Route: 065
     Dates: end: 20120930
  9. BETAMETHASONE VALERATE. [Concomitant]
     Active Substance: BETAMETHASONE VALERATE
     Indication: DERMATITIS ALLERGIC
     Dosage: 0.02% CREAM.APPLY TO AFFECTED AREA
     Route: 065
  10. CLOPIDOGREL BISULFATE. [Concomitant]
     Active Substance: CLOPIDOGREL BISULFATE
     Indication: CEREBROVASCULAR ACCIDENT
     Dosage: TABLET
     Route: 065
     Dates: end: 20121003
  11. PANTOPRAZOLE [Concomitant]
     Active Substance: PANTOPRAZOLE SODIUM
     Indication: PRODUCT USED FOR UNKNOWN INDICATION
     Dosage: TABLET,MORNING
     Route: 065
  12. BENZYDAMINE HCL [Concomitant]
     Indication: ORAL PAIN
     Dosage: MOUTHWASH.BEFORE EACH MEAL
     Route: 065
  13. NYSTATIN. [Concomitant]
     Active Substance: NYSTATIN
     Indication: CANDIDA INFECTION
     Dosage: MIXTURE.100000U/ML
     Route: 065
  14. METOCLOPRAMIDE. [Concomitant]
     Active Substance: METOCLOPRAMIDE
     Indication: NAUSEA
     Dosage: ONE TABLET FOUR TIMES A DAY
     Route: 065

REACTIONS (5)
  - Large intestinal obstruction [Recovered/Resolved]
  - Malignant neoplasm progression [Fatal]
  - Autoimmune colitis [Recovered/Resolved]
  - Small intestinal haemorrhage [Recovered/Resolved]
  - Small intestinal obstruction [Not Recovered/Not Resolved]

NARRATIVE: CASE EVENT DATE: 20120802
